FAERS Safety Report 5277752-4 (Version None)
Quarter: 2007Q1

REPORT INFORMATION
  Report Type: 
  Country: None (occurrence: None)
  Receive Date: 20070321
  Receipt Date: 20070314
  Transmission Date: 20070707
  Serious: Yes (Death)
  Sender: FDA-Public Use
  Company Number: 228899

PATIENT
  Age: 3 Year
  Sex: Male

DRUGS (3)
  1. NUTROPIN [Suspect]
     Indication: GROWTH HORMONE DEFICIENCY
     Dates: start: 20021025
  2. HYDROCORTISONE [Concomitant]
  3. SYNTHROID [Concomitant]

REACTIONS (13)
  - ADRENOCORTICAL INSUFFICIENCY ACUTE [None]
  - BLOOD CREATININE INCREASED [None]
  - BLOOD GLUCOSE DECREASED [None]
  - BLOOD PRESSURE IMMEASURABLE [None]
  - COMA [None]
  - ELECTROCARDIOGRAM ABNORMAL [None]
  - HYPOGLYCAEMIA [None]
  - HYPOXIA [None]
  - PULSE ABSENT [None]
  - PUPIL FIXED [None]
  - PYREXIA [None]
  - RESPIRATORY RATE DECREASED [None]
  - VIRAL INFECTION [None]
